FAERS Safety Report 11457019 (Version 1)
Quarter: 2015Q3

REPORT INFORMATION
  Report Type: Spontaneous
  Country: US (occurrence: None)
  Receive Date: 20150903
  Receipt Date: 20150903
  Transmission Date: 20151125
  Serious: Yes (Death, Hospitalization)
  Sender: FDA-Public Use
  Company Number: None

PATIENT
  Age: 89 Year
  Sex: Male
  Weight: 64.1 kg

DRUGS (6)
  1. TAMSULOSIN [Concomitant]
     Active Substance: TAMSULOSIN
  2. PRADAXA [Suspect]
     Active Substance: DABIGATRAN ETEXILATE MESYLATE
     Indication: ATRIAL FIBRILLATION
     Route: 048
     Dates: start: 20120702, end: 20150810
  3. ACETAMINOPHEN. [Concomitant]
     Active Substance: ACETAMINOPHEN
  4. LORATADINE. [Concomitant]
     Active Substance: LORATADINE
  5. METOPROLOL TARTRATE. [Concomitant]
     Active Substance: METOPROLOL TARTRATE
  6. DONEPEZIL. [Concomitant]
     Active Substance: DONEPEZIL

REACTIONS (5)
  - Fall [None]
  - Subdural haemorrhage [None]
  - Cardio-respiratory arrest [None]
  - Haematuria [None]
  - Unresponsive to stimuli [None]

NARRATIVE: CASE EVENT DATE: 20150810
